FAERS Safety Report 21500077 (Version 1)
Quarter: 2022Q4

REPORT INFORMATION
  Report Type: Spontaneous
  Country: IT (occurrence: IT)
  Receive Date: 20221024
  Receipt Date: 20221024
  Transmission Date: 20230113
  Serious: Yes (Other)
  Sender: FDA-Public Use
  Company Number: IT-HAMELN-2022HAM000919

PATIENT
  Age: 54 Year
  Sex: Male

DRUGS (5)
  1. PROPOFOL [Suspect]
     Active Substance: PROPOFOL
     Indication: Maintenance of anaesthesia
     Dosage: 1 %. MAINTENANCE OF ANAESTHESIA
     Route: 065
  2. PROPOFOL [Suspect]
     Active Substance: PROPOFOL
     Indication: Induction of anaesthesia
     Dosage: FOR INDUCTION
     Route: 065
  3. KETAMINE [Suspect]
     Active Substance: KETAMINE
     Indication: Induction of anaesthesia
     Route: 065
  4. SUFENTANIL [Suspect]
     Active Substance: SUFENTANIL
     Indication: Induction of anaesthesia
     Dosage: INCREMENTAL BOLUSES OF 5MCG STARTING 3 MINUTES PRIOR TO LARYNGOSCOPY FOR A TOTAL OF 10MCG
     Route: 042
  5. SUFENTANIL [Suspect]
     Active Substance: SUFENTANIL
     Indication: Analgesic therapy
     Dosage: ADDITIONAL 10MCG BOLUSES WERE GIVEN AFTER INTUBATION
     Route: 042

REACTIONS (6)
  - Inadequate analgesia [None]
  - Blood pressure increased [Unknown]
  - Drug ineffective [None]
  - Procedural haemorrhage [None]
  - Haemodynamic instability [None]
  - Tachycardia [None]
